FAERS Safety Report 8384910-9 (Version None)
Quarter: 2012Q2

REPORT INFORMATION
  Report Type: 
  Country: None (occurrence: None)
  Receive Date: 20120524
  Receipt Date: 20120517
  Transmission Date: 20120825
  Serious: Yes (Hospitalization)
  Sender: FDA-Public Use
  Company Number: US-CELGENEUS-163-AB007-12052161

PATIENT
  Sex: Male
  Weight: 51.9 kg

DRUGS (17)
  1. ABRAXANE [Suspect]
     Dosage: 125 MILLIGRAM/SQ. METER
     Route: 041
     Dates: start: 20120124
  2. GEMCITABINE [Suspect]
     Dosage: 1000 MILLIGRAM/SQ. METER
     Route: 041
     Dates: start: 20120508, end: 20120515
  3. MULTI-VITAMINS [Concomitant]
     Indication: SUPPLEMENTATION THERAPY
     Route: 048
     Dates: start: 19900101
  4. OMEPRAZOLE [Concomitant]
     Dosage: 20 MILLIGRAM
     Route: 048
     Dates: start: 20120228
  5. ATORVASTATIN CALCIUM [Concomitant]
     Dosage: 10 MILLIGRAM
     Route: 048
     Dates: start: 19990101
  6. COLACE [Concomitant]
     Indication: CONSTIPATION
     Dosage: 100 MILLIGRAM
     Route: 048
     Dates: start: 20120210
  7. SENNA-MINT WAF [Concomitant]
     Indication: CONSTIPATION
     Dosage: 15 MILLIGRAM
     Route: 048
     Dates: start: 20120210
  8. OXYCONTIN [Concomitant]
     Indication: ABDOMINAL PAIN
     Dosage: 30 MILLIGRAM
     Route: 048
     Dates: start: 20120214
  9. NYSTATIN [Concomitant]
     Dosage: 100000 UNITS/ML
     Route: 048
     Dates: start: 20120228
  10. ONDANSETRON [Concomitant]
     Dosage: 8 MILLIGRAM
     Route: 048
     Dates: start: 20120111
  11. CREON [Concomitant]
     Dosage: 24000 IU (INTERNATIONAL UNIT)
     Route: 048
     Dates: start: 20120228
  12. ABRAXANE [Suspect]
     Dosage: 125 MILLIGRAM/SQ. METER
     Route: 041
     Dates: start: 20120508, end: 20120515
  13. GEMCITABINE [Suspect]
     Dosage: 1000 MILLIGRAM/SQ. METER
     Route: 041
     Dates: start: 20120124
  14. DEXAMETHASONE [Concomitant]
     Indication: FATIGUE
     Dosage: 1 MILLIGRAM
     Route: 048
     Dates: start: 20120313
  15. PROCHLORPERAZINE [Concomitant]
     Dosage: 10 MILLIGRAM
     Route: 048
     Dates: start: 20120111
  16. MORPHINE SULFATE [Concomitant]
     Indication: ABDOMINAL PAIN
     Dosage: 15 MILLIGRAM
     Route: 048
     Dates: start: 20120120
  17. OXYCODONE HCL [Concomitant]
     Indication: ABDOMINAL PAIN
     Dosage: 5 MILLIGRAM
     Route: 048
     Dates: start: 20120120

REACTIONS (1)
  - COLITIS [None]
